FAERS Safety Report 13148260 (Version 1)
Quarter: 2017Q1

REPORT INFORMATION
  Report Type: Spontaneous
  Country: US (occurrence: US)
  Receive Date: 20170121
  Receipt Date: 20170121
  Transmission Date: 20170428
  Serious: Yes (Disabling, Other)
  Sender: FDA-Public Use
  Company Number: None

PATIENT
  Age: 45 Year
  Sex: Female
  Weight: 112.5 kg

DRUGS (8)
  1. CLARITIN [Concomitant]
     Active Substance: LORATADINE
  2. PROPANOLOL [Concomitant]
     Active Substance: PROPRANOLOL HYDROCHLORIDE
  3. EFFECTOR XR [Concomitant]
  4. MOBIC [Concomitant]
     Active Substance: MELOXICAM
  5. SUBOXONE [Suspect]
     Active Substance: BUPRENORPHINE HYDROCHLORIDE\NALOXONE HYDROCHLORIDE
     Indication: THERAPY CESSATION
     Dosage: ?          QUANTITY:1 BILINGUAL STRIP;?
     Route: 060
     Dates: start: 20161223, end: 20161227
  6. RANITIDINE. [Concomitant]
     Active Substance: RANITIDINE
  7. OSTEO-BI-FLEX [Concomitant]
  8. IBUPROFEN. [Concomitant]
     Active Substance: IBUPROFEN

REACTIONS (9)
  - Erythema [None]
  - Mucous membrane disorder [None]
  - Pain [None]
  - Skin abrasion [None]
  - Stomatitis [None]
  - Ulcer [None]
  - Tongue discolouration [None]
  - Gingival erythema [None]
  - Swelling [None]

NARRATIVE: CASE EVENT DATE: 20161224
